FAERS Safety Report 4945007-0 (Version None)
Quarter: 2006Q1

REPORT INFORMATION
  Report Type: 
  Country: None (occurrence: None)
  Receive Date: 20060117
  Receipt Date: 20050620
  Transmission Date: 20060701
  Serious: Yes (Other)
  Sender: FDA-Public Use
  Company Number: A03200501882

PATIENT
  Age: 79 Year
  Sex: Male

DRUGS (5)
  1. PLAVIX [Suspect]
     Indication: STENT PLACEMENT
     Dosage: 75 MG QD - ORAL
     Route: 048
     Dates: start: 20050214
  2. ACETYLSALICYLIC ACID SRT [Concomitant]
  3. ROSUVASTATIN [Concomitant]
  4. OLMESARTAN [Concomitant]
  5. METOPROLOL SUCCINATE [Concomitant]

REACTIONS (7)
  - ADVERSE DRUG REACTION [None]
  - BACK PAIN [None]
  - DIARRHOEA [None]
  - DIZZINESS [None]
  - DYSPEPSIA [None]
  - GASTRIC ULCER HAEMORRHAGE [None]
  - URINARY TRACT INFECTION [None]
